FAERS Safety Report 6667738-7 (Version None)
Quarter: 2010Q2

REPORT INFORMATION
  Report Type: 
  Country: None (occurrence: None)
  Receive Date: 20100405
  Receipt Date: 20100322
  Transmission Date: 20101027
  Serious: Yes (Hospitalization)
  Sender: FDA-Public Use
  Company Number: GB-MYLANLABS-2010S1004821

PATIENT
  Age: 42 Year
  Sex: Male

DRUGS (3)
  1. LANSOPRAZOLE [Suspect]
     Indication: DRUG USE FOR UNKNOWN INDICATION
     Route: 048
     Dates: start: 20100111, end: 20100212
  2. DICLOFENAC [Suspect]
     Indication: PROCEDURAL PAIN
     Route: 048
     Dates: start: 20100109, end: 20100127
  3. MYOZYME [Concomitant]
     Indication: GLYCOGEN STORAGE DISEASE TYPE II
     Route: 042

REACTIONS (2)
  - GALLBLADDER OEDEMA [None]
  - LIVER FUNCTION TEST ABNORMAL [None]
